FAERS Safety Report 6730689-3 (Version None)
Quarter: 2010Q2

REPORT INFORMATION
  Report Type: 
  Country: None (occurrence: None)
  Receive Date: 20100518
  Receipt Date: 20100514
  Transmission Date: 20101027
  Serious: Yes (Hospitalization, Disabling)
  Sender: FDA-Public Use
  Company Number: US-MERCK-0911USA00163

PATIENT
  Age: 52 Year
  Sex: Female
  Weight: 49 kg

DRUGS (4)
  1. FOSAMAX [Suspect]
     Indication: OSTEOPOROSIS
     Route: 048
     Dates: start: 20010201, end: 20081026
  2. FOSAMAX [Suspect]
     Route: 048
     Dates: start: 19980101, end: 20010201
  3. PAXIL [Concomitant]
     Route: 065
  4. MAXALT [Concomitant]
     Route: 065

REACTIONS (29)
  - ACUTE PRERENAL FAILURE [None]
  - ANAEMIA [None]
  - ANAEMIA POSTOPERATIVE [None]
  - ARTHRITIS [None]
  - BACK PAIN [None]
  - BLOOD PRESSURE INCREASED [None]
  - CHRONIC SINUSITIS [None]
  - CONTUSION [None]
  - DRUG DEPENDENCE [None]
  - FALL [None]
  - FEMUR FRACTURE [None]
  - HAND FRACTURE [None]
  - HEADACHE [None]
  - HYPERCHOLESTEROLAEMIA [None]
  - HYPOKALAEMIA [None]
  - HYPOTHYROIDIC GOITRE [None]
  - HYPOTHYROIDISM [None]
  - INGUINAL HERNIA [None]
  - JOINT DISLOCATION [None]
  - LIPOMA [None]
  - LIPOMA OF BREAST [None]
  - LOW TURNOVER OSTEOPATHY [None]
  - LUMBAR SPINAL STENOSIS [None]
  - MIGRAINE [None]
  - OSTEOMA [None]
  - PAIN IN EXTREMITY [None]
  - SPONDYLOLISTHESIS [None]
  - STRESS FRACTURE [None]
  - VULVAL DISORDER [None]
